FAERS Safety Report 10915576 (Version 1)
Quarter: 2015Q1

REPORT INFORMATION
  Report Type: Spontaneous
  Country: US (occurrence: AT)
  Receive Date: 20150316
  Receipt Date: 20150316
  Transmission Date: 20150721
  Serious: Yes (Other)
  Sender: FDA-Public Use
  Company Number: US-CIPLA LTD.-2015AT02066

PATIENT

DRUGS (3)
  1. IRINOTECAN [Suspect]
     Active Substance: IRINOTECAN
     Indication: COLORECTAL CANCER METASTATIC
     Dosage: 120 MG/M2 EVERY 14 DAYS FOR 4 CYCLES
     Route: 042
  2. BKM120 [Suspect]
     Active Substance: BUPARLISIB HYDROCHLORIDE
     Indication: COLORECTAL CANCER METASTATIC
     Dosage: 50 MG/D 24 HOURS AFTER THE FIRST DOSE OF IRINOTECAN, FOR 4 CYCLES
     Route: 048
  3. IRINOTECAN [Suspect]
     Active Substance: IRINOTECAN
     Dosage: 150 MG/M2 EVERY 14 DAYS
     Route: 042

REACTIONS (1)
  - Disease progression [Unknown]
